FAERS Safety Report 9687919 (Version 4)
Quarter: 2014Q1

REPORT INFORMATION
  Report Type: Report from Study
  Country: JP (occurrence: JP)
  Receive Date: 20131114
  Receipt Date: 20140127
  Transmission Date: 20141002
  Serious: Yes (Death, Life-Threatening)
  Sender: FDA-Public Use
  Company Number: JP-PFIZER INC-2013321558

PATIENT
  Age: 81 Year
  Sex: Female
  Weight: 39.8 kg

DRUGS (8)
  1. XALKORI [Suspect]
     Indication: NON-SMALL CELL LUNG CANCER
     Dosage: 250 MG, 2X/DAY
     Route: 048
     Dates: start: 20131010, end: 20131104
  2. LIPITOR [Concomitant]
     Dosage: 5 MG, ALTERNATE DAY
     Route: 048
     Dates: end: 20131104
  3. MICARDIS [Concomitant]
     Dosage: 20 MG, 1X/DAY
     Route: 048
     Dates: end: 20131104
  4. BUFFERIN A [Concomitant]
     Dosage: 81 MG, 1X/DAY
     Route: 048
     Dates: end: 20131104
  5. PRIMPERAN [Concomitant]
     Dosage: 5 MG, 2X/DAY
     Route: 048
     Dates: start: 20131010, end: 20131104
  6. PURSENNID [Concomitant]
     Dosage: 24 MG, AS NEEDED
     Route: 048
     Dates: start: 20131015, end: 20131023
  7. KENEI G ENEMA [Concomitant]
     Dosage: 60 ML, AS NEEDED
     Route: 054
     Dates: start: 20131017, end: 20131030
  8. SOLITA-T1 INJECTION [Concomitant]
     Dosage: 500 ML, 2X/DAY
     Route: 041
     Dates: start: 20131017, end: 20131019

REACTIONS (5)
  - Cardiac arrest [Fatal]
  - Depressed level of consciousness [Fatal]
  - Apnoea [Fatal]
  - Cardiac failure [Recovering/Resolving]
  - Weight increased [Recovering/Resolving]
